FAERS Safety Report 18566231 (Version 1)
Quarter: 2020Q4

REPORT INFORMATION
  Report Type: Spontaneous
  Country: DE (occurrence: DE)
  Receive Date: 20201201
  Receipt Date: 20201201
  Transmission Date: 20210114
  Serious: Yes (Other)
  Sender: FDA-Public Use
  Company Number: DE-DENTSPLY-2020SCDP000377

PATIENT

DRUGS (3)
  1. ARTICAINE [Suspect]
     Active Substance: ARTICAINE
     Indication: LOCAL ANAESTHESIA
     Dosage: UNK
  2. PRILOCAINE [Suspect]
     Active Substance: PRILOCAINE
     Indication: LOCAL ANAESTHESIA
     Dosage: UNK
     Route: 058
  3. LIDOCAINE. [Suspect]
     Active Substance: LIDOCAINE
     Indication: LOCAL ANAESTHESIA
     Dosage: UNK

REACTIONS (4)
  - Type IV hypersensitivity reaction [Unknown]
  - Skin test positive [Unknown]
  - Therapeutic product cross-reactivity [Unknown]
  - Eczema [Unknown]
